FAERS Safety Report 20658194 (Version 2)
Quarter: 2022Q2

REPORT INFORMATION
  Report Type: Report from Study
  Country: NL (occurrence: NL)
  Receive Date: 20220331
  Receipt Date: 20220414
  Transmission Date: 20220720
  Serious: Yes (Death, Hospitalization)
  Sender: FDA-Public Use
  Company Number: NL-NOVARTISPH-NVSC2022NL071744

PATIENT
  Sex: Female

DRUGS (11)
  1. ACLASTA [Suspect]
     Active Substance: ZOLEDRONIC ACID
     Indication: Osteoporosis
     Dosage: UNK
     Route: 065
     Dates: start: 20210316
  2. ACLASTA [Suspect]
     Active Substance: ZOLEDRONIC ACID
     Dosage: UNK
     Route: 065
     Dates: start: 20220328
  3. ACLASTA [Suspect]
     Active Substance: ZOLEDRONIC ACID
     Dosage: 5 MG, Q12MO
     Route: 042
     Dates: start: 202203
  4. OMEPRAZOLE [Concomitant]
     Active Substance: OMEPRAZOLE
     Indication: Product used for unknown indication
     Dosage: 40 MG, QD (1 X PER DAY)
     Route: 048
  5. PREDNISOLONE [Concomitant]
     Active Substance: PREDNISOLONE
     Indication: Product used for unknown indication
     Dosage: 20 MG, QD
     Route: 048
  6. COTRIMOXAZOLE [Concomitant]
     Active Substance: SULFAMETHOXAZOLE\TRIMETHOPRIM
     Indication: Product used for unknown indication
     Dosage: 480 MG, QD ((1 X PER DAY)
     Route: 065
  7. BONASOL [Concomitant]
     Indication: Product used for unknown indication
     Dosage: UNK UNK, QW (70/100 MG/ML PER WEEK)
     Route: 065
  8. MINERAL OIL EMULSION\PETROLATUM [Concomitant]
     Active Substance: MINERAL OIL EMULSION\PETROLATUM
     Indication: Product used for unknown indication
     Dosage: 1 DAILY 2 IF NEEDED
     Route: 065
  9. OPSUMIT [Concomitant]
     Active Substance: MACITENTAN
     Indication: Product used for unknown indication
     Dosage: 10 MG, QD
     Route: 065
  10. CYCLOPHOSPHAMIDE [Concomitant]
     Active Substance: CYCLOPHOSPHAMIDE
     Indication: Product used for unknown indication
     Dosage: 150 MG, QMO
     Route: 065
  11. IRBESARTAN [Concomitant]
     Active Substance: IRBESARTAN
     Indication: Product used for unknown indication
     Dosage: 75 MG, QD
     Route: 065

REACTIONS (4)
  - Pneumonia [Fatal]
  - Dyspnoea [Fatal]
  - Pyrexia [Fatal]
  - Rectal haemorrhage [Fatal]
